FAERS Safety Report 13833535 (Version 1)
Quarter: 2017Q3

REPORT INFORMATION
  Report Type: Spontaneous
  Country: RU (occurrence: RU)
  Receive Date: 20170804
  Receipt Date: 20170804
  Transmission Date: 20171127
  Serious: Yes (Hospitalization)
  Sender: FDA-Public Use
  Company Number: RU-BAYER-2017-146161

PATIENT
  Age: 30 Year
  Sex: Female

DRUGS (4)
  1. MIRENA [Suspect]
     Active Substance: LEVONORGESTREL
     Indication: ADENOMYOSIS
     Dosage: 20 MCG/24HR, CONT
     Route: 015
  2. YARINA [Suspect]
     Active Substance: DROSPIRENONE\ETHINYL ESTRADIOL
     Indication: ADENOMYOSIS
  3. YARINA [Suspect]
     Active Substance: DROSPIRENONE\ETHINYL ESTRADIOL
     Indication: METRORRHAGIA
  4. MIRENA [Suspect]
     Active Substance: LEVONORGESTREL
     Indication: MENORRHAGIA

REACTIONS (7)
  - Loss of consciousness [None]
  - Cerebrovascular accident [None]
  - Feeling abnormal [None]
  - Cyanosis [None]
  - Product use in unapproved indication [None]
  - Drug ineffective [None]
  - Tongue movement disturbance [None]
